FAERS Safety Report 5220252-8 (Version None)
Quarter: 2007Q1

REPORT INFORMATION
  Report Type: 
  Country: None (occurrence: None)
  Receive Date: 20061121
  Receipt Date: 20060828
  Transmission Date: 20070707
  Serious: No
  Sender: FDA-Public Use
  Company Number: TPA2006A01145

PATIENT
  Age: 63 Year
  Sex: Female
  Weight: 72.5755 kg

DRUGS (6)
  1. ROZEREM [Suspect]
     Indication: SLEEP DISORDER
     Dosage: 8 MG, QHS, PER ORAL
     Route: 048
  2. CYMBALTA [Concomitant]
  3. PREMARIN [Concomitant]
  4. LISINOPRIL [Concomitant]
  5. NORVASC [Concomitant]
  6. EXCEDRIN (MIGRAINE) [Concomitant]

REACTIONS (6)
  - DRUG INEFFECTIVE [None]
  - HYPERSOMNIA [None]
  - MEMORY IMPAIRMENT [None]
  - SUDDEN ONSET OF SLEEP [None]
  - THERAPEUTIC RESPONSE DELAYED [None]
  - THERAPEUTIC RESPONSE PROLONGED [None]
